FAERS Safety Report 6889389-1 (Version None)
Quarter: 2010Q3

REPORT INFORMATION
  Report Type: 
  Country: None (occurrence: None)
  Receive Date: 20100730
  Receipt Date: 20080223
  Transmission Date: 20110219
  Serious: No
  Sender: FDA-Public Use
  Company Number: US-PFIZER INC-2007075563

PATIENT
  Sex: Male
  Weight: 80.74 kg

DRUGS (8)
  1. LIPITOR [Suspect]
     Route: 048
     Dates: start: 19960101
  2. PRINZIDE [Concomitant]
  3. ACETYLSALICYLIC ACID SRT [Concomitant]
  4. PROPECIA [Concomitant]
  5. ALPRAZOLAM [Concomitant]
  6. AMBIEN [Concomitant]
  7. FISH OIL [Concomitant]
  8. ZOLOFT [Concomitant]

REACTIONS (1)
  - NEUROPATHY PERIPHERAL [None]
